FAERS Safety Report 10017293 (Version 1)
Quarter: 2014Q1

REPORT INFORMATION
  Report Type: Spontaneous
  Country: GB (occurrence: GB)
  Receive Date: 20140318
  Receipt Date: 20140318
  Transmission Date: 20141002
  Serious: Yes (Other)
  Sender: FDA-Public Use
  Company Number: PHFR2014GB002213

PATIENT
  Sex: Male

DRUGS (1)
  1. NILOTINIB [Suspect]

REACTIONS (3)
  - Carpal tunnel syndrome [Unknown]
  - Pain in extremity [Unknown]
  - Paraesthesia [Unknown]
